FAERS Safety Report 10142811 (Version 1)
Quarter: 2014Q2

REPORT INFORMATION
  Report Type: Spontaneous
  Country: NZ (occurrence: NZ)
  Receive Date: 20140430
  Receipt Date: 20140430
  Transmission Date: 20141212
  Serious: Yes (Other)
  Sender: FDA-Public Use
  Company Number: NZ-ASTRAZENECA-2014SE27473

PATIENT
  Sex: Male

DRUGS (5)
  1. BRILINTA [Suspect]
     Route: 048
  2. ASPIRIN [Concomitant]
  3. METOPROLOL [Concomitant]
     Dosage: 23.75 MG
  4. ATORVASTATIN [Concomitant]
  5. GTN [Concomitant]

REACTIONS (3)
  - Myocardial infarction [Unknown]
  - Myalgia [Unknown]
  - Dyspnoea [Unknown]
